FAERS Safety Report 14615063 (Version 4)
Quarter: 2019Q4

REPORT INFORMATION
  Report Type: Spontaneous
  Country: DE (occurrence: DE)
  Receive Date: 20180308
  Receipt Date: 20191217
  Transmission Date: 20200122
  Serious: Yes (Death, Other)
  Sender: FDA-Public Use
  Company Number: DE-PFIZER INC-2018090707

PATIENT
  Age: 53 Year
  Sex: Male

DRUGS (11)
  1. NEUROCIL [LEVOMEPROMAZINE HYDROCHLORIDE] [Concomitant]
     Dosage: UNK
  2. BOLUS ALBA COMP [Concomitant]
     Dosage: UNK
  3. ABIRATERONE. [Concomitant]
     Active Substance: ABIRATERONE ACETATE
     Dosage: UNK
  4. DIAZEPAM. [Concomitant]
     Active Substance: DIAZEPAM
     Dosage: UNK
  5. NOVALGIN (METAMIZOLE SODIUM) [Concomitant]
     Active Substance: METAMIZOLE SODIUM
     Dosage: UNK
  6. DEXAMETHASONE. [Concomitant]
     Active Substance: DEXAMETHASONE
     Dosage: UNK
  7. HALOPERIDOL. [Concomitant]
     Active Substance: HALOPERIDOL
     Dosage: UNK
  8. DOCETAXEL. [Suspect]
     Active Substance: DOCETAXEL
     Indication: PROSTATE CANCER METASTATIC
     Dosage: 75 MG/M2, THREE TIMES A WEEK (TIW)
     Route: 042
     Dates: start: 20150629, end: 20150721
  9. ENZALUTAMIDE [Concomitant]
     Active Substance: ENZALUTAMIDE
     Dosage: UNK
  10. VOMEX A [Concomitant]
     Active Substance: DIMENHYDRINATE
     Dosage: UNK
  11. METHADDICT [Concomitant]
     Active Substance: METHADONE HYDROCHLORIDE
     Dosage: UNK

REACTIONS (4)
  - Sepsis [Fatal]
  - Neutropenia [Fatal]
  - Anaemia [Unknown]
  - Acute kidney injury [Fatal]
